FAERS Safety Report 14576739 (Version 3)
Quarter: 2018Q1

REPORT INFORMATION
  Report Type: Report from Study
  Country: AU (occurrence: AU)
  Receive Date: 20180227
  Receipt Date: 20180309
  Transmission Date: 20180509
  Serious: Yes (Death, Other)
  Sender: FDA-Public Use
  Company Number: AU-AMGEN-AUSNI2018026597

PATIENT
  Sex: Male

DRUGS (2)
  1. CINACALCET HCL [Suspect]
     Active Substance: CINACALCET HYDROCHLORIDE
     Indication: PRODUCT USED FOR UNKNOWN INDICATION
     Dosage: 90 MG, QD
     Route: 065
  2. CALCITRIOL. [Concomitant]
     Active Substance: CALCITRIOL

REACTIONS (2)
  - Appendicitis [Fatal]
  - Sepsis [Fatal]
